FAERS Safety Report 14336272 (Version 1)
Quarter: 2017Q4

REPORT INFORMATION
  Report Type: Spontaneous
  Country: US (occurrence: US)
  Receive Date: 20171229
  Receipt Date: 20171229
  Transmission Date: 20180321
  Serious: Yes (Other)
  Sender: FDA-Public Use
  Company Number: US-BAYER-2017-246006

PATIENT
  Age: 20 Year
  Sex: Female
  Weight: 53.97 kg

DRUGS (1)
  1. BAYER ASPIRIN [Suspect]
     Active Substance: ASPIRIN
     Dosage: 16 DF, QD
     Route: 048

REACTIONS (2)
  - Eye haemorrhage [Unknown]
  - Incorrect dose administered [Unknown]
